FAERS Safety Report 18958768 (Version 1)
Quarter: 2021Q1

REPORT INFORMATION
  Report Type: Other
  Country: CA (occurrence: CA)
  Receive Date: 20210302
  Receipt Date: 20210302
  Transmission Date: 20210420
  Serious: Yes (Other)
  Sender: FDA-Public Use
  Company Number: CA-APOTEX-2021AP003890

PATIENT
  Sex: Female

DRUGS (1)
  1. ZOLEDRONIC ACID [Suspect]
     Active Substance: ZOLEDRONIC ACID
     Indication: PRODUCT USED FOR UNKNOWN INDICATION
     Dosage: UNK (1 EVERY 1 YEAR)
     Route: 051

REACTIONS (12)
  - Eye pain [Unknown]
  - Arthritis [Unknown]
  - Abdominal pain upper [Unknown]
  - Feeling abnormal [Unknown]
  - Bone pain [Unknown]
  - Influenza like illness [Unknown]
  - Dysentery [Unknown]
  - Diarrhoea [Unknown]
  - Affect lability [Unknown]
  - Pain in jaw [Unknown]
  - Hypoaesthesia [Unknown]
  - Ear pain [Unknown]
